APPROVED DRUG PRODUCT: ZEPOSIA
Active Ingredient: OZANIMOD HYDROCHLORIDE
Strength: EQ 0.92MG BASE
Dosage Form/Route: CAPSULE;ORAL
Application: N209899 | Product #003
Applicant: BRISTOL MYERS SQUIBB CO
Approved: Mar 25, 2020 | RLD: Yes | RS: Yes | Type: RX

PATENTS:
Patent 10239846 | Expires: Nov 15, 2030
Patent 11680050 | Expires: Sep 30, 2038
Patent 11680050 | Expires: Sep 30, 2038
Patent 8481573 | Expires: Mar 24, 2033
Patent 9382217 | Expires: May 14, 2029
Patent 8796318 | Expires: May 14, 2029

EXCLUSIVITY:
Code: M-309 | Date: Aug 30, 2027